FAERS Safety Report 10595328 (Version 1)
Quarter: 2014Q4

REPORT INFORMATION
  Report Type: Spontaneous
  Country: US (occurrence: None)
  Receive Date: 20141119
  Receipt Date: 20141119
  Transmission Date: 20150529
  Serious: Yes (Hospitalization)
  Sender: FDA-Public Use
  Company Number: None

PATIENT
  Age: 82 Year
  Sex: Male

DRUGS (1)
  1. QUETIAPINE 50 MG [Suspect]
     Active Substance: QUETIAPINE
     Route: 048

REACTIONS (6)
  - Atrial fibrillation [None]
  - Femoral neck fracture [None]
  - Cervical vertebral fracture [None]
  - Thoracic vertebral fracture [None]
  - Aortic dissection [None]
  - Fall [None]

NARRATIVE: CASE EVENT DATE: 20140801
